FAERS Safety Report 8013551-8 (Version None)
Quarter: 2011Q4

REPORT INFORMATION
  Report Type: 
  Country: None (occurrence: None)
  Receive Date: 20111229
  Receipt Date: 20111222
  Transmission Date: 20120403
  Serious: Yes (Death)
  Sender: FDA-Public Use
  Company Number: CA-ABBOTT-11P-028-0880933-00

PATIENT
  Sex: Male
  Weight: 92.2 kg

DRUGS (5)
  1. HUMIRA [Suspect]
     Indication: PSORIASIS
     Dosage: 40MG
     Route: 058
     Dates: start: 20100924
  2. HYDRA-ZIDE [Concomitant]
     Indication: PRODUCT USED FOR UNKNOWN INDICATION
     Dosage: 20MG OD
     Route: 048
     Dates: start: 19980301
  3. CRESTOR [Concomitant]
     Indication: PRODUCT USED FOR UNKNOWN INDICATION
     Dosage: OD 30MG
     Route: 048
     Dates: start: 20090401
  4. ACCUPRIL [Concomitant]
     Indication: PRODUCT USED FOR UNKNOWN INDICATION
     Dosage: OD 20MG
     Route: 048
     Dates: start: 19980301
  5. METFORMIN HCL [Concomitant]
     Indication: PRODUCT USED FOR UNKNOWN INDICATION
     Dosage: BID 500 MG
     Route: 048
     Dates: start: 20080301

REACTIONS (1)
  - FALL [None]
